FAERS Safety Report 19922801 (Version 1)
Quarter: 2021Q4

REPORT INFORMATION
  Report Type: Spontaneous
  Country: US (occurrence: US)
  Receive Date: 20211005
  Receipt Date: 20211005
  Transmission Date: 20220303
  Serious: No
  Sender: FDA-Public Use
  Company Number: None

PATIENT
  Age: 67 Year
  Sex: Female
  Weight: 81.45 kg

DRUGS (22)
  1. KISQALI [Suspect]
     Active Substance: RIBOCICLIB
     Indication: Breast cancer
     Dosage: ?          OTHER FREQUENCY:QD FOR 21/28 DAYS;
     Route: 048
     Dates: start: 20210916, end: 20211005
  2. Budesonide-Formoterol fumarate 160-4.5mcg/act [Concomitant]
  3. TRAMADOL [Concomitant]
     Active Substance: TRAMADOL
  4. Albuterol sulfate 2.5mg/3ml [Concomitant]
  5. Alendronate 35mg [Concomitant]
  6. ASPIRIN [Concomitant]
     Active Substance: ASPIRIN
  7. ANASTROZOLE [Concomitant]
     Active Substance: ANASTROZOLE
  8. CALCIUM\VITAMIN D [Concomitant]
     Active Substance: CALCIUM\VITAMIN D
  9. CILOSTAZOL [Concomitant]
     Active Substance: CILOSTAZOL
  10. DOCUSATE SODIUM [Concomitant]
     Active Substance: DOCUSATE SODIUM
  11. FUROSEMIDE [Concomitant]
     Active Substance: FUROSEMIDE
  12. IBUPROFEN [Concomitant]
     Active Substance: IBUPROFEN
  13. LANTUS [Concomitant]
     Active Substance: INSULIN GLARGINE
  14. Isosorbide mononitrate ER 60mg [Concomitant]
  15. LEVOCETIRIZINE [Concomitant]
     Active Substance: LEVOCETIRIZINE
  16. LISINOPRIL [Concomitant]
     Active Substance: LISINOPRIL
  17. MONTELUKAST [Concomitant]
     Active Substance: MONTELUKAST SODIUM
  18. Nitroglycerin 0.4mg [Concomitant]
  19. Klor-Con M10 10mEq [Concomitant]
  20. SIMVASTATIN [Concomitant]
     Active Substance: SIMVASTATIN
  21. VASCEPA [Concomitant]
     Active Substance: ICOSAPENT ETHYL
  22. LEVOTHYROXINE [Concomitant]
     Active Substance: LEVOTHYROXINE

REACTIONS (2)
  - Immune system disorder [None]
  - Pneumonia [None]

NARRATIVE: CASE EVENT DATE: 20211005
